FAERS Safety Report 7044955-8 (Version None)
Quarter: 2010Q4

REPORT INFORMATION
  Report Type: 
  Country: None (occurrence: None)
  Receive Date: 20101014
  Receipt Date: 20101011
  Transmission Date: 20110411
  Serious: Yes (Hospitalization)
  Sender: FDA-Public Use
  Company Number: FR-BRISTOL-MYERS SQUIBB COMPANY-15328990

PATIENT
  Age: 64 Year
  Sex: Male

DRUGS (1)
  1. APROVEL TABS 300 MG [Suspect]
     Indication: HYPERTENSION
     Dosage: 1DF:1 TABLET
     Dates: start: 20100715, end: 20100927

REACTIONS (1)
  - TOXIC SKIN ERUPTION [None]
